FAERS Safety Report 5800823-8 (Version None)
Quarter: 2008Q3

REPORT INFORMATION
  Report Type: 
  Country: None (occurrence: None)
  Receive Date: 20080703
  Receipt Date: 20080627
  Transmission Date: 20090109
  Serious: Yes (Other)
  Sender: FDA-Public Use
  Company Number: US-GENENTECH-263672

PATIENT
  Sex: Male
  Weight: 72 kg

DRUGS (6)
  1. BEVACIZUMAB [Suspect]
     Indication: NON-SMALL CELL LUNG CANCER
     Dosage: 1240 MG, Q3W
     Route: 042
     Dates: start: 20080512
  2. CARBOPLATIN [Suspect]
     Indication: NON-SMALL CELL LUNG CANCER
     Dosage: 775 MG, Q3W
     Route: 042
     Dates: start: 20080512
  3. PACLITAXEL [Suspect]
     Indication: NON-SMALL CELL LUNG CANCER
     Dosage: 415 MG, Q3W
     Route: 042
     Dates: start: 20080512
  4. FENTANYL [Concomitant]
     Indication: PAIN
     Dosage: 50 MG, UNK
  5. MOTRIN [Concomitant]
     Indication: PAIN
     Dosage: 200 MG, UNK
  6. MIRALAX [Concomitant]
     Indication: CONSTIPATION
     Dosage: 1 UNK, QD
     Dates: start: 20080606

REACTIONS (1)
  - CONFUSIONAL STATE [None]
